FAERS Safety Report 5155439-6 (Version None)
Quarter: 2006Q4

REPORT INFORMATION
  Report Type: 
  Country: None (occurrence: None)
  Receive Date: 20061114
  Receipt Date: 20061103
  Transmission Date: 20070319
  Serious: Yes (Other)
  Sender: FDA-Public Use
  Company Number: 2006135449

PATIENT
  Age: 51 Year
  Sex: Male
  Weight: 79.3795 kg

DRUGS (5)
  1. LIPITOR [Suspect]
     Indication: BLOOD CHOLESTEROL INCREASED
     Dosage: 40 MG (40 MG, 1 IN 1 D)
     Dates: start: 19980101
  2. CELEBREX [Suspect]
     Indication: ARTHRITIS
     Dates: start: 20010101, end: 20020101
  3. REQUIP [Concomitant]
  4. AMBIEN [Concomitant]
  5. ZOCOR [Concomitant]

REACTIONS (5)
  - ARTHRITIS [None]
  - BLOOD CREATININE INCREASED [None]
  - FOCAL GLOMERULOSCLEROSIS [None]
  - MUSCULOSKELETAL DISCOMFORT [None]
  - OEDEMA PERIPHERAL [None]
